FAERS Safety Report 6157044-1 (Version None)
Quarter: 2009Q2

REPORT INFORMATION
  Report Type: 
  Country: None (occurrence: None)
  Receive Date: 20090416
  Receipt Date: 20090409
  Transmission Date: 20091009
  Serious: Yes (Hospitalization, Other)
  Sender: FDA-Public Use
  Company Number: US-AVENTIS-200913100US

PATIENT
  Sex: Female

DRUGS (2)
  1. LANTUS [Suspect]
     Indication: TYPE 2 DIABETES MELLITUS
     Route: 058
  2. OPTICLIK (INSULIN INJECTION PEN) [Suspect]
     Indication: TYPE 2 DIABETES MELLITUS

REACTIONS (6)
  - BLINDNESS UNILATERAL [None]
  - CATARACT [None]
  - EYE HAEMORRHAGE [None]
  - HYPOGLYCAEMIC UNCONSCIOUSNESS [None]
  - PNEUMONIA STAPHYLOCOCCAL [None]
  - RENAL IMPAIRMENT [None]
